FAERS Safety Report 6250461-0 (Version None)
Quarter: 2009Q2

REPORT INFORMATION
  Report Type: 
  Country: None (occurrence: None)
  Receive Date: 20090630
  Receipt Date: 20090626
  Transmission Date: 20091009
  Serious: Yes (Hospitalization, Other)
  Sender: FDA-Public Use
  Company Number: NO-BAYER-200921628GPV

PATIENT
  Age: 47 Year
  Sex: Female

DRUGS (4)
  1. MIRENA [Suspect]
     Indication: MENOPAUSAL SYMPTOMS
     Route: 015
     Dates: start: 20090506
  2. ESTRADERM [Concomitant]
     Indication: MENOPAUSAL SYMPTOMS
  3. ESTRADERM [Concomitant]
  4. EVOREL [Concomitant]
     Indication: MENOPAUSAL SYMPTOMS
     Route: 062

REACTIONS (2)
  - CEREBRAL INFARCTION [None]
  - PARAESTHESIA [None]
